FAERS Safety Report 5910456-0 (Version None)
Quarter: 2008Q4

REPORT INFORMATION
  Report Type: 
  Country: None (occurrence: None)
  Receive Date: 20081006
  Receipt Date: 20081006
  Transmission Date: 20090506
  Serious: Yes (Life-Threatening, Hospitalization)
  Sender: FDA-Public Use
  Company Number: None

PATIENT
  Age: 32 Year
  Sex: Female
  Weight: 52.1637 kg

DRUGS (1)
  1. OXYCODONE HCL [Suspect]
     Indication: PROCEDURAL HEADACHE
     Dosage: 15 MG EVERY 3 HRS PO
     Route: 048

REACTIONS (2)
  - DELIRIUM [None]
  - POST PROCEDURAL COMPLICATION [None]
